FAERS Safety Report 8560433-9 (Version None)
Quarter: 2012Q3

REPORT INFORMATION
  Report Type: 
  Country: None (occurrence: None)
  Receive Date: 20120802
  Receipt Date: 20120724
  Transmission Date: 20120928
  Serious: Yes (Other)
  Sender: FDA-Public Use
  Company Number: US-ASTRAZENECA-2012SE33104

PATIENT
  Age: 90 Year
  Sex: Male
  Weight: 54 kg

DRUGS (10)
  1. NEXIUM [Suspect]
     Route: 048
  2. SYNTHROID [Concomitant]
     Route: 048
  3. ACETAMINOPHEN/HYDROCODONE BITARTRATE [Concomitant]
     Indication: PAIN
     Dosage: 500/5 MG EVERY 4 HOURS IF NEEDED
     Route: 048
  4. NITROGLYCERIN [Concomitant]
     Indication: CHEST PAIN
     Dosage: 0.4 MG EVERY FIVE MINUTED IF NEEDED
     Route: 060
  5. VITAMIN D [Concomitant]
     Route: 048
  6. FERROUS SULFATE TAB [Concomitant]
     Route: 048
  7. NORVASC [Concomitant]
     Route: 048
  8. PLAVIX [Concomitant]
     Route: 048
  9. TOPROL-XL [Suspect]
     Route: 048
  10. CRESTOR [Suspect]
     Route: 048

REACTIONS (16)
  - HEPATIC NEOPLASM MALIGNANT [None]
  - CORONARY ARTERY DISEASE [None]
  - HYPERCHOLESTEROLAEMIA [None]
  - CHOLELITHIASIS [None]
  - IRON DEFICIENCY ANAEMIA [None]
  - RENAL IMPAIRMENT [None]
  - VITAMIN D DEFICIENCY [None]
  - OSTEOARTHRITIS [None]
  - HYPERTENSION [None]
  - HYPOTHYROIDISM [None]
  - DECREASED APPETITE [None]
  - PAIN [None]
  - GOUT [None]
  - OEDEMA PERIPHERAL [None]
  - WEIGHT DECREASED [None]
  - GASTROOESOPHAGEAL REFLUX DISEASE [None]
